FAERS Safety Report 7467594-3 (Version None)
Quarter: 2011Q2

REPORT INFORMATION
  Report Type: 
  Country: None (occurrence: None)
  Receive Date: 20110509
  Receipt Date: 20110412
  Transmission Date: 20111010
  Serious: Yes (Hospitalization, Other)
  Sender: FDA-Public Use
  Company Number: US-BAYER-201042027NA

PATIENT
  Age: 29 Year
  Sex: Female
  Weight: 69.841 kg

DRUGS (4)
  1. YASMIN [Suspect]
     Indication: ORAL CONTRACEPTION
     Dosage: UNK
     Route: 048
     Dates: start: 20030301, end: 20030701
  2. SYNTHROID [Concomitant]
     Dosage: 0.75 MG, QD
  3. IBUPROFEN [Concomitant]
  4. CELEXA [Concomitant]
     Dosage: 60 MG, QD

REACTIONS (2)
  - INJURY [None]
  - PULMONARY EMBOLISM [None]
